FAERS Safety Report 19802669 (Version 1)
Quarter: 2021Q3

REPORT INFORMATION
  Report Type: Spontaneous
  Country: ZA (occurrence: ZA)
  Receive Date: 20210908
  Receipt Date: 20210908
  Transmission Date: 20211014
  Serious: Yes (Death)
  Sender: FDA-Public Use
  Company Number: ZA-LUPIN PHARMACEUTICALS INC.-2021-16446

PATIENT
  Age: 77 Year
  Sex: Male

DRUGS (10)
  1. UROMAX (DOXAZOSIN MESILATE) [Suspect]
     Active Substance: DOXAZOSIN MESYLATE
     Indication: PROSTATIC DISORDER
     Dosage: 0.4 MILLIGRAM
     Route: 048
     Dates: end: 202106
  2. JALRA [Suspect]
     Active Substance: VILDAGLIPTIN
     Indication: DIABETES MELLITUS
     Dosage: 50 MILLIGRAM
     Route: 048
     Dates: end: 202106
  3. CIPLA SIMVASTATIN [Suspect]
     Active Substance: SIMVASTATIN
     Indication: BLOOD CHOLESTEROL ABNORMAL
     Dosage: 40 MILLIGRAM
     Route: 048
     Dates: end: 202106
  4. EUTHYROX [Suspect]
     Active Substance: LEVOTHYROXINE SODIUM
     Indication: THYROID DISORDER
     Dosage: 100 MICROGRAM
     Route: 048
     Dates: end: 202106
  5. ONBREZ BREEZHALER [Suspect]
     Active Substance: INDACATEROL
     Indication: EMPHYSEMA
     Dosage: 150 MCG
     Dates: end: 202101
  6. VERAHEXAL [Suspect]
     Active Substance: VERAPAMIL HYDROCHLORIDE
     Indication: HYPERTENSION
     Dosage: 240 MILLIGRAM
     Route: 048
     Dates: end: 202106
  7. ZARTAN CO TABLETS [Suspect]
     Active Substance: HYDROCHLOROTHIAZIDE\LOSARTAN POTASSIUM
     Indication: HYPERTENSION
     Dosage: UNK, 50/12.5 MG
     Route: 048
     Dates: end: 202106
  8. MYOPRIN [Suspect]
     Active Substance: ASPIRIN
     Indication: ANTICOAGULANT THERAPY
     Dosage: 100 MILLIGRAM
     Route: 048
     Dates: end: 202106
  9. PULMICORT TURBUHALER [Suspect]
     Active Substance: BUDESONIDE
     Indication: ASTHMA
     Dosage: 200 MICROGRAM
     Dates: start: 202104, end: 202106
  10. FORVENT [Suspect]
     Active Substance: TIOTROPIUM BROMIDE
     Indication: EMPHYSEMA
     Dosage: 18 MICROGRAM
     Dates: end: 202106

REACTIONS (1)
  - Emphysema [Fatal]

NARRATIVE: CASE EVENT DATE: 20210612
